FAERS Safety Report 9776163 (Version 1)
Quarter: 2013Q4

REPORT INFORMATION
  Report Type: Spontaneous
  Country: US (occurrence: US)
  Receive Date: 20131220
  Receipt Date: 20131220
  Transmission Date: 20140711
  Serious: Yes (Hospitalization)
  Sender: FDA-Public Use
  Company Number: US-ELI_LILLY_AND_COMPANY-US201312003705

PATIENT
  Sex: Male

DRUGS (5)
  1. HUMULIN NPH [Suspect]
     Indication: TYPE 2 DIABETES MELLITUS
     Dosage: 25 U, PRN
     Route: 065
  2. ASPIRIN [Concomitant]
     Indication: ANTICOAGULANT THERAPY
     Dosage: 81 MG, QD
  3. OMEPRAZOLE [Concomitant]
     Dosage: 20 MG, QD
  4. ATORVASTATIN [Concomitant]
     Indication: BLOOD CHOLESTEROL INCREASED
     Dosage: 80 MG, UNK
  5. CALCIUM [Concomitant]

REACTIONS (6)
  - Staphylococcal infection [Unknown]
  - Infection [Unknown]
  - Infection susceptibility increased [Unknown]
  - Nasopharyngitis [Unknown]
  - Hypoacusis [Unknown]
  - Incorrect dose administered [Unknown]
